FAERS Safety Report 6618166-1 (Version None)
Quarter: 2010Q1

REPORT INFORMATION
  Report Type: 
  Country: None (occurrence: None)
  Receive Date: 20100302
  Receipt Date: 20100216
  Transmission Date: 20100710
  Serious: Yes (Other)
  Sender: FDA-Public Use
  Company Number: 1000012079

PATIENT
  Age: 43 Year
  Sex: Female

DRUGS (8)
  1. ESCITALOPRAM OXALATE [Suspect]
     Indication: GENERALISED ANXIETY DISORDER
     Dosage: 5 MG, ORAL; 10 MG, ORAL; 15 MG, ORAL; 10 MG, ORAL; 15 MG, ORAL; 20 MG, ORAL
     Route: 048
     Dates: start: 20081022, end: 20080101
  2. ESCITALOPRAM OXALATE [Suspect]
     Indication: GENERALISED ANXIETY DISORDER
     Dosage: 5 MG, ORAL; 10 MG, ORAL; 15 MG, ORAL; 10 MG, ORAL; 15 MG, ORAL; 20 MG, ORAL
     Route: 048
     Dates: start: 20081001, end: 20081008
  3. ESCITALOPRAM OXALATE [Suspect]
     Indication: GENERALISED ANXIETY DISORDER
     Dosage: 5 MG, ORAL; 10 MG, ORAL; 15 MG, ORAL; 10 MG, ORAL; 15 MG, ORAL; 20 MG, ORAL
     Route: 048
     Dates: start: 20081008, end: 20081015
  4. ESCITALOPRAM OXALATE [Suspect]
     Indication: GENERALISED ANXIETY DISORDER
     Dosage: 5 MG, ORAL; 10 MG, ORAL; 15 MG, ORAL; 10 MG, ORAL; 15 MG, ORAL; 20 MG, ORAL
     Route: 048
     Dates: start: 20081015, end: 20081022
  5. ESCITALOPRAM OXALATE [Suspect]
     Indication: GENERALISED ANXIETY DISORDER
     Dosage: 5 MG, ORAL; 10 MG, ORAL; 15 MG, ORAL; 10 MG, ORAL; 15 MG, ORAL; 20 MG, ORAL
     Route: 048
     Dates: start: 20081101, end: 20090126
  6. ESCITALOPRAM OXALATE [Suspect]
     Indication: GENERALISED ANXIETY DISORDER
     Dosage: 5 MG, ORAL; 10 MG, ORAL; 15 MG, ORAL; 10 MG, ORAL; 15 MG, ORAL; 20 MG, ORAL
     Route: 048
     Dates: start: 20090126
  7. BUSPAR [Concomitant]
  8. AMITRIPTYLINE HCL [Concomitant]

REACTIONS (18)
  - ANXIETY [None]
  - APATHY [None]
  - CRYING [None]
  - DEPRESSION [None]
  - DISTURBANCE IN ATTENTION [None]
  - DRUG INEFFECTIVE [None]
  - FATIGUE [None]
  - FEELING HOT [None]
  - FEELING OF DESPAIR [None]
  - IRRITABILITY [None]
  - LETHARGY [None]
  - MERYCISM [None]
  - PANIC DISORDER [None]
  - PARAESTHESIA [None]
  - RESTLESSNESS [None]
  - SCRATCH [None]
  - TERMINAL INSOMNIA [None]
  - WEIGHT INCREASED [None]
